FAERS Safety Report 7573678-1 (Version None)
Quarter: 2011Q2

REPORT INFORMATION
  Report Type: 
  Country: None (occurrence: None)
  Receive Date: 20110627
  Receipt Date: 20110613
  Transmission Date: 20111010
  Serious: Yes (Death, Other)
  Sender: FDA-Public Use
  Company Number: US-ROCHE-777503

PATIENT

DRUGS (2)
  1. MYCOPHENOLATE MEFETIL [Suspect]
     Route: 065
  2. CYCLOSPORINE [Suspect]
     Route: 065

REACTIONS (5)
  - CARDIAC TAMPONADE [None]
  - PERICARDIAL EFFUSION [None]
  - IMPAIRED HEALING [None]
  - INFECTION [None]
  - PLEURAL EFFUSION [None]
